FAERS Safety Report 20811098 (Version 4)
Quarter: 2023Q1

REPORT INFORMATION
  Report Type: Spontaneous
  Country: US (occurrence: US)
  Receive Date: 20220510
  Receipt Date: 20230131
  Transmission Date: 20230417
  Serious: No
  Sender: FDA-Public Use
  Company Number: US-PFIZER INC-202101796890

PATIENT
  Age: 84 Year
  Sex: Male
  Weight: 104.31 kg

DRUGS (1)
  1. VYNDAMAX [Suspect]
     Active Substance: TAFAMIDIS
     Indication: Cardiac amyloidosis
     Dosage: 61 MG

REACTIONS (2)
  - Nausea [Unknown]
  - Dyspnoea exertional [Not Recovered/Not Resolved]
